FAERS Safety Report 10472580 (Version 2)
Quarter: 2014Q3

REPORT INFORMATION
  Report Type: Report from Study
  Country: FR (occurrence: FR)
  Receive Date: 20140924
  Receipt Date: 20140924
  Transmission Date: 20150326
  Serious: Yes (Death)
  Sender: FDA-Public Use
  Company Number: FR-VERTEX PHARMACEUTICALS-2013-008236

PATIENT
  Age: 61 Year
  Sex: Female
  Weight: 57 kg

DRUGS (9)
  1. RIBAVIRINE [Suspect]
     Active Substance: RIBAVIRIN
     Indication: HEPATITIS C
     Dosage: 200 MG, QID
     Route: 065
     Dates: start: 20110328, end: 20111122
  2. COZAAR [Concomitant]
     Active Substance: LOSARTAN POTASSIUM
     Indication: HYPERTENSION
     Dosage: UNK, QD
     Route: 065
     Dates: start: 20101126, end: 20120711
  3. UVEDOSE [Concomitant]
     Active Substance: CHOLECALCIFEROL
     Indication: VITAMIN SUPPLEMENTATION
     Dosage: 2.5 MG, UNK
     Route: 065
     Dates: start: 20110412
  4. RIBAVIRINE [Suspect]
     Active Substance: RIBAVIRIN
     Dosage: 200 MG, TID
     Route: 065
     Dates: start: 20111112
  5. TITANOREINE (NOS) [Concomitant]
     Indication: HAEMORRHOIDS
     Dosage: UNK UNK, QD
     Route: 065
     Dates: start: 20110405
  6. TRANSIPEG [Concomitant]
     Active Substance: POLYETHYLENE GLYCOL 3350
     Indication: CONSTIPATION
     Dosage: UNK
     Route: 065
     Dates: start: 20110405
  7. PEGASYS [Suspect]
     Active Substance: PEGINTERFERON ALFA-2A
     Indication: HEPATITIS C
     Dosage: 180 ?G, QW
     Route: 065
     Dates: start: 20110328, end: 20120217
  8. SPECIAFOLDINE [Concomitant]
     Active Substance: FOLIC ACID
     Indication: ANAEMIA
     Dosage: 5 MG, QD
     Route: 065
     Dates: start: 20110324
  9. VX-950 (TELAPREVIR) [Suspect]
     Active Substance: TELAPREVIR
     Indication: HEPATITIS C
     Dosage: 750 MG, TID
     Route: 048
     Dates: start: 20110328, end: 20110620

REACTIONS (4)
  - Mitral valve replacement [Fatal]
  - Coronary revascularisation [Fatal]
  - Aortic valve replacement [Fatal]
  - Coronary artery bypass [Fatal]

NARRATIVE: CASE EVENT DATE: 20120626
